FAERS Safety Report 8819505 (Version 3)
Quarter: 2013Q1

REPORT INFORMATION
  Report Type: Report from Study
  Country: JP (occurrence: JP)
  Receive Date: 20120930
  Receipt Date: 20130116
  Transmission Date: 20140127
  Serious: Yes (Other)
  Sender: FDA-Public Use
  Company Number: JP-009507513-1209JPN009271

PATIENT
  Age: 60 Year
  Sex: Male
  Weight: 62 kg

DRUGS (12)
  1. PEGINTRON [Suspect]
     Indication: CHRONIC HEPATITIS C
     Dosage: 1.5 MICROGRAM PER KILOGRAM/ WEEK
     Route: 058
     Dates: start: 20120703, end: 20121210
  2. REBETOL [Suspect]
     Indication: CHRONIC HEPATITIS C
     Dosage: 800 MG, 1/1DAY
     Route: 048
     Dates: start: 20120703, end: 20120722
  3. REBETOL [Suspect]
     Dosage: 400 MG, 1/1DAY
     Route: 048
     Dates: start: 20120723, end: 20120729
  4. REBETOL [Suspect]
     Dosage: 200 MG, 1/1DAY
     Route: 048
     Dates: start: 20120730, end: 20120909
  5. REBETOL [Suspect]
     Dosage: 400 MG, 1/1DAY
     Route: 048
     Dates: start: 20120910, end: 20121014
  6. REBETOL [Suspect]
     Dosage: 600 MG, QD
     Route: 048
     Dates: start: 20121015, end: 20121104
  7. REBETOL [Suspect]
     Dosage: 800 MG, QD
     Route: 048
     Dates: start: 20121105, end: 20121210
  8. TELAVIC [Suspect]
     Indication: CHRONIC HEPATITIS C
     Dosage: 1500 MG, 1/1DAY
     Route: 048
     Dates: start: 20120703, end: 20120924
  9. CLARITIN REDITABS TABLETS 10 MG [Concomitant]
     Indication: PROPHYLAXIS
     Dosage: 10 MG, 1/1DAY,FORMULATION:POR
     Route: 048
  10. CLARITIN REDITABS TABLETS 10 MG [Concomitant]
     Dosage: DAILY DOSE UNKNOWN
     Route: 048
  11. LIVALO [Concomitant]
     Indication: HYPERLIPIDAEMIA
     Dosage: 2 MG, 1/1DAY,FORMULATION:POR
     Route: 048
  12. EPADEL S [Concomitant]
     Indication: HYPERLIPIDAEMIA
     Dosage: 1800 MG, 1/1DAY
     Route: 048

REACTIONS (3)
  - Anaemia [Not Recovered/Not Resolved]
  - Anaemia [Not Recovered/Not Resolved]
  - Anaemia [Not Recovered/Not Resolved]
